FAERS Safety Report 19520265 (Version 1)
Quarter: 2021Q3

REPORT INFORMATION
  Report Type: Spontaneous
  Country: NL (occurrence: NL)
  Receive Date: 20210712
  Receipt Date: 20210712
  Transmission Date: 20211014
  Serious: Yes (Other)
  Sender: FDA-Public Use
  Company Number: NL-MYLANLABS-2021M1039828

PATIENT
  Age: 47 Year
  Sex: Female
  Weight: 51 kg

DRUGS (6)
  1. DAPSON [Concomitant]
     Active Substance: DAPSONE
     Dosage: ONCE DAILY HALF TABLET
     Dates: start: 1998
  2. ALLOPURINOL. [Suspect]
     Active Substance: ALLOPURINOL
     Indication: PRODUCT USED FOR UNKNOWN INDICATION
     Dosage: 1 DOSAGE FORM, QD, ONCE DAILY 1 PIECE
     Dates: start: 202101
  3. FOLIUMZUUR [Concomitant]
     Active Substance: FOLIC ACID
     Dosage: TABLET, 0,5 MG (MILLIGRAM)
  4. MESALAZINE [Suspect]
     Active Substance: MESALAMINE
     Indication: PRODUCT USED FOR UNKNOWN INDICATION
     Dosage: 1 DOSAGE FORM, QD
     Dates: start: 202006
  5. ASTRAZENECA COVID?19 VACCINE [Suspect]
     Active Substance: AZD-1222
     Indication: COVID-19 IMMUNISATION
     Dosage: 1 DOSAGE FORM
     Dates: start: 20210227
  6. AZATHIOPRINE. [Concomitant]
     Active Substance: AZATHIOPRINE
     Dosage: 1 DOSAGE FORM, QOD, 1 PIECE EVERY OTHER DAY
     Dates: start: 2002

REACTIONS (16)
  - Back pain [Recovering/Resolving]
  - Thirst [Recovered/Resolved]
  - Chills [Recovered/Resolved]
  - Chromaturia [Recovered/Resolved]
  - Neck pain [Recovering/Resolving]
  - Fatigue [Not Recovered/Not Resolved]
  - Oropharyngeal pain [Recovered/Resolved]
  - Malaise [Recovering/Resolving]
  - Hyperpyrexia [Recovered/Resolved]
  - Eye pain [Recovered/Resolved]
  - Lymphadenopathy [Not Recovered/Not Resolved]
  - Abdominal pain [Recovering/Resolving]
  - Dizziness [Recovered/Resolved]
  - Injection site pain [Not Recovered/Not Resolved]
  - Cough [Recovered/Resolved]
  - Headache [Recovered/Resolved]

NARRATIVE: CASE EVENT DATE: 20210227
